FAERS Safety Report 7713647-1 (Version None)
Quarter: 2011Q3

REPORT INFORMATION
  Report Type: 
  Country: None (occurrence: None)
  Receive Date: 20110826
  Receipt Date: 20110818
  Transmission Date: 20111222
  Serious: Yes (Other)
  Sender: FDA-Public Use
  Company Number: PHHY2011JP75238

PATIENT
  Age: 72 Year
  Sex: Male

DRUGS (3)
  1. PREDNISONE [Suspect]
     Dosage: 12.5 MG, DAILY
  2. TACROLIMUS [Suspect]
  3. PREDNISONE [Suspect]
     Indication: RHEUMATOID ARTHRITIS
     Dosage: 15 TO 40 MG, UNK

REACTIONS (10)
  - ERYTHEMA [None]
  - FATIGUE [None]
  - PURPURA [None]
  - GENERAL PHYSICAL CONDITION ABNORMAL [None]
  - PAIN [None]
  - KAPOSI'S SARCOMA [None]
  - HAEMOGLOBIN DECREASED [None]
  - OEDEMA [None]
  - SKIN MASS [None]
  - WEIGHT DECREASED [None]
